FAERS Safety Report 5796624-X (Version None)
Quarter: 2008Q2

REPORT INFORMATION
  Report Type: 
  Country: None (occurrence: None)
  Receive Date: 20080630
  Receipt Date: 20080630
  Transmission Date: 20081010
  Serious: No
  Sender: FDA-Public Use
  Company Number: None

PATIENT
  Age: 76 Year
  Sex: Male
  Weight: 65.77 kg

DRUGS (1)
  1. SUNITINIB [Suspect]
     Indication: RENAL CELL CARCINOMA
     Dosage: 50 MG EVERY DAY PO
     Route: 048
     Dates: start: 20080115

REACTIONS (1)
  - THYROIDITIS [None]
